FAERS Safety Report 4596996-8 (Version None)
Quarter: 2005Q1

REPORT INFORMATION
  Report Type: 
  Country: None (occurrence: None)
  Receive Date: 20050228
  Receipt Date: 20050211
  Transmission Date: 20050727
  Serious: Yes (Hospitalization)
  Sender: FDA-Public Use
  Company Number: 2005BI003285

PATIENT

DRUGS (1)
  1. NATALIZUMAB [Suspect]
     Indication: CROHN'S DISEASE
     Dosage: 300 MG/QM; IV
     Route: 042

REACTIONS (1)
  - BLOOD LACTIC ACID INCREASED [None]
